FAERS Safety Report 16935703 (Version 1)
Quarter: 2019Q4

REPORT INFORMATION
  Report Type: Spontaneous
  Country: RU (occurrence: RU)
  Receive Date: 20191018
  Receipt Date: 20191018
  Transmission Date: 20200122
  Serious: Yes (Other)
  Sender: FDA-Public Use
  Company Number: RU-009507513-1910RUS010407

PATIENT

DRUGS (1)
  1. GRAZOPREVIR (+) ELBASVIR [Suspect]
     Active Substance: ELBASVIR\GRAZOPREVIR
     Indication: HEPATITIS C
     Dosage: GRAZOPREVIR 100 MG/ ELBASVIR 50 MG PER DAY FOR 12 WEEKS
     Dates: start: 20190309

REACTIONS (4)
  - Secondary hypertension [Unknown]
  - Atrial fibrillation [Recovered/Resolved]
  - Tricuspid valve disease [Recovered/Resolved]
  - Renal disorder [Unknown]

NARRATIVE: CASE EVENT DATE: 201906
